FAERS Safety Report 9522294 (Version 3)
Quarter: 2015Q2

REPORT INFORMATION
  Report Type: Spontaneous
  Country: US (occurrence: US)
  Receive Date: 20130913
  Receipt Date: 20150430
  Transmission Date: 20150821
  Serious: Yes (Hospitalization, Other)
  Sender: FDA-Public Use
  Company Number: US-BAYER-2013-110526

PATIENT
  Age: 28 Year
  Sex: Female
  Weight: 52.15 kg

DRUGS (3)
  1. MIRENA [Suspect]
     Active Substance: LEVONORGESTREL
     Indication: CONTRACEPTION
     Dosage: 20 MCG/24HR, CONT
     Route: 015
     Dates: start: 20101001, end: 20120612
  2. PRENATAL VITAMINS [Concomitant]
     Active Substance: VITAMINS
  3. ASACOL [Concomitant]
     Active Substance: MESALAMINE

REACTIONS (11)
  - Scar [None]
  - Medical device discomfort [None]
  - Device dislocation [None]
  - Anxiety [None]
  - Procedural pain [None]
  - Medical device pain [None]
  - Emotional distress [None]
  - Device failure [None]
  - Injury [None]
  - Uterine perforation [None]
  - Pain [None]

NARRATIVE: CASE EVENT DATE: 20120612
